FAERS Safety Report 7418718-5 (Version None)
Quarter: 2011Q2

REPORT INFORMATION
  Report Type: 
  Country: None (occurrence: None)
  Receive Date: 20110415
  Receipt Date: 20110405
  Transmission Date: 20111010
  Serious: Yes (Other)
  Sender: FDA-Public Use
  Company Number: DE-BAYER-2011-030832

PATIENT
  Age: 62 Year
  Sex: Male

DRUGS (6)
  1. PANTOPRAZOLE [Concomitant]
     Dosage: UNK
     Dates: start: 20100121
  2. SORAFENIB (RAF KINASE INHIBITOR) [Suspect]
     Dosage: UNK
     Dates: start: 20100102, end: 20100608
  3. RANITIC [Concomitant]
     Dosage: UNK
     Dates: start: 20100218, end: 20100701
  4. RAMIPRIL [Concomitant]
     Dosage: UNK
     Dates: start: 20100702
  5. BISOPROLOL [Concomitant]
     Dosage: UNK
     Dates: start: 20100218
  6. SUNITINIB [Suspect]
     Dosage: UNK
     Dates: start: 20100702

REACTIONS (1)
  - BRAIN NATRIURETIC PEPTIDE INCREASED [None]
